FAERS Safety Report 8622308-6 (Version None)
Quarter: 2012Q3

REPORT INFORMATION
  Report Type: 
  Country: None (occurrence: None)
  Receive Date: 20120827
  Receipt Date: 20120813
  Transmission Date: 20120928
  Serious: Yes (Death, Other)
  Sender: FDA-Public Use
  Company Number: PL-BIOGENIDEC-2012BI033247

PATIENT
  Age: 29 Year
  Sex: Male

DRUGS (6)
  1. TYSABRI [Suspect]
     Route: 042
     Dates: start: 20110716, end: 20120721
  2. TYSABRI [Suspect]
     Indication: RELAPSING-REMITTING MULTIPLE SCLEROSIS
     Route: 042
     Dates: start: 20090101
  3. MYOPAM [Concomitant]
     Dates: start: 20110701
  4. BISOPROLOL FUMARATE [Concomitant]
     Dates: start: 20110101
  5. TRAZODONE HYDROCHLORIDE [Concomitant]
  6. KALIPOZ PROLONGATUM [Concomitant]
     Dates: start: 20110101

REACTIONS (2)
  - PNEUMONIA [None]
  - RESPIRATORY FAILURE [None]
